FAERS Safety Report 18945484 (Version 1)
Quarter: 2021Q1

REPORT INFORMATION
  Report Type: Spontaneous
  Country: US (occurrence: US)
  Receive Date: 20210226
  Receipt Date: 20210226
  Transmission Date: 20210420
  Serious: Yes (Life-Threatening, Hospitalization)
  Sender: FDA-Public Use
  Company Number: US-MYLANLABS-2021M1011457

PATIENT
  Age: 44 Year
  Sex: Female

DRUGS (1)
  1. BACLOFEN. [Suspect]
     Active Substance: BACLOFEN
     Indication: CEREBRAL PALSY
     Dosage: INTRATHECAL BACLOFEN PUMP
     Route: 037

REACTIONS (8)
  - Unresponsive to stimuli [Recovered/Resolved]
  - Hypotension [Recovered/Resolved]
  - Dyspnoea [Recovered/Resolved]
  - Accidental overdose [Recovered/Resolved]
  - Respiratory depression [Recovered/Resolved]
  - Seizure like phenomena [Recovered/Resolved]
  - Sedation [Recovered/Resolved]
  - Device infusion issue [Recovered/Resolved]
